FAERS Safety Report 7237838-1 (Version None)
Quarter: 2011Q1

REPORT INFORMATION
  Report Type: 
  Country: None (occurrence: None)
  Receive Date: 20110121
  Receipt Date: 20110113
  Transmission Date: 20110831
  Serious: Yes (Death, Life-Threatening)
  Sender: FDA-Public Use
  Company Number: SG-ROCHE-754023

PATIENT

DRUGS (1)
  1. HERCEPTIN [Suspect]
     Route: 065

REACTIONS (2)
  - GASTROINTESTINAL OBSTRUCTION [None]
  - DEATH [None]
